APPROVED DRUG PRODUCT: MITOMYCIN
Active Ingredient: MITOMYCIN
Strength: 20MG/VIAL
Dosage Form/Route: INJECTABLE;INJECTION
Application: A064106 | Product #001
Applicant: HOSPIRA INC
Approved: Nov 29, 1995 | RLD: No | RS: No | Type: DISCN